FAERS Safety Report 8204788-3 (Version None)
Quarter: 2012Q1

REPORT INFORMATION
  Report Type: 
  Country: None (occurrence: None)
  Receive Date: 20120313
  Receipt Date: 20120229
  Transmission Date: 20120608
  Serious: Yes (Hospitalization, Other)
  Sender: FDA-Public Use
  Company Number: IT-PFIZER INC-2012056154

PATIENT
  Age: 84 Year
  Sex: Female

DRUGS (9)
  1. ASPIRIN [Concomitant]
     Indication: MYOCARDIAL ISCHAEMIA
     Dosage: 100 MG, UNK
     Route: 048
  2. FOSAVANCE [Concomitant]
     Indication: OSTEOPOROSIS
     Dosage: 70 MG/ 5600 UI
     Route: 048
  3. MINITRAN [Suspect]
     Indication: MYOCARDIAL ISCHAEMIA
     Dosage: 2 DF/DAY
     Route: 048
     Dates: start: 20100101, end: 20111130
  4. CARVEDILOL [Suspect]
     Indication: HYPERTENSION
     Dosage: 1 DF, 1X/DAY
     Route: 048
     Dates: start: 20100101, end: 20111130
  5. RAMIPRIL [Suspect]
     Indication: HYPERTENSION
     Dosage: 5 MG, 1X/DAY
     Route: 048
     Dates: start: 20090101, end: 20111130
  6. RAMIPRIL [Suspect]
     Dosage: 2.5 MG, UNK
  7. PANTOPRAZOLE [Concomitant]
     Indication: GASTROOESOPHAGEAL REFLUX DISEASE
     Dosage: 20 MG, UNK
     Route: 048
  8. RAMIPRIL [Suspect]
     Dosage: 1.5 MG, UNK
  9. LASIX [Suspect]
     Indication: HYPERTENSION
     Dosage: 0.5 DF, 1X/DAY
     Route: 048
     Dates: start: 20110901, end: 20111130

REACTIONS (2)
  - BRADYCARDIA [None]
  - SYNCOPE [None]
